FAERS Safety Report 13878534 (Version 1)
Quarter: 2017Q3

REPORT INFORMATION
  Report Type: Spontaneous
  Country: US (occurrence: US)
  Receive Date: 20170817
  Receipt Date: 20170817
  Transmission Date: 20171127
  Serious: No
  Sender: FDA-Public Use
  Company Number: US-ROCHE-721363

PATIENT
  Sex: Male
  Weight: 88.6 kg

DRUGS (10)
  1. AVANDAMET [Concomitant]
     Active Substance: METFORMIN HYDROCHLORIDE\ROSIGLITAZONE MALEATE
     Route: 065
  2. INTERFERON ALFA-2A [Suspect]
     Active Substance: INTERFERON ALFA-2A
     Indication: HEPATITIS C
     Route: 065
     Dates: start: 200703, end: 20070613
  3. OXYCODONE [Concomitant]
     Active Substance: OXYCODONE
     Route: 065
  4. RIBAVIRIN. [Suspect]
     Active Substance: RIBAVIRIN
     Indication: HEPATITIS C
     Route: 065
     Dates: start: 200703, end: 20070613
  5. ZETIA [Concomitant]
     Active Substance: EZETIMIBE
     Route: 065
  6. JANUVIA [Concomitant]
     Active Substance: SITAGLIPTIN PHOSPHATE
     Route: 065
  7. FAMOTIDINE. [Concomitant]
     Active Substance: FAMOTIDINE
     Route: 065
  8. LYRICA [Concomitant]
     Active Substance: PREGABALIN
     Route: 065
  9. LISINOPRIL. [Concomitant]
     Active Substance: LISINOPRIL
     Route: 065
  10. XALATAN [Concomitant]
     Active Substance: LATANOPROST
     Dosage: XALATAN EYE DROPS
     Route: 065

REACTIONS (2)
  - Therapy non-responder [Unknown]
  - Neutropenia [Unknown]

NARRATIVE: CASE EVENT DATE: 2007
